FAERS Safety Report 14282259 (Version 1)
Quarter: 2017Q4

REPORT INFORMATION
  Report Type: Spontaneous
  Country: GB (occurrence: FR)
  Receive Date: 20171213
  Receipt Date: 20171213
  Transmission Date: 20180321
  Serious: Yes (Hospitalization)
  Sender: FDA-Public Use
  Company Number: FR-FRESENIUS KABI-FK201710652

PATIENT
  Age: 49 Year
  Sex: Male

DRUGS (10)
  1. DABRAFENIB [Concomitant]
     Active Substance: DABRAFENIB
     Indication: METASTASES TO MENINGES
  2. CYTARABINE (MANUFACTURER UNKNOWN) [Suspect]
     Active Substance: CYTARABINE
     Route: 037
  3. PREDNISOLONE. [Concomitant]
     Active Substance: PREDNISOLONE
     Indication: NEUROLOGICAL SYMPTOM
  4. PREDNISOLONE. [Concomitant]
     Active Substance: PREDNISOLONE
  5. CYTARABINE (MANUFACTURER UNKNOWN) [Suspect]
     Active Substance: CYTARABINE
     Indication: METASTASES TO MENINGES
     Route: 037
  6. PREDNISOLONE. [Concomitant]
     Active Substance: PREDNISOLONE
     Route: 048
  7. CYTARABINE (MANUFACTURER UNKNOWN) [Suspect]
     Active Substance: CYTARABINE
     Route: 037
  8. PREDNISOLONE. [Concomitant]
     Active Substance: PREDNISOLONE
     Route: 042
  9. PREDNISOLONE. [Concomitant]
     Active Substance: PREDNISOLONE
  10. CYTARABINE (MANUFACTURER UNKNOWN) [Suspect]
     Active Substance: CYTARABINE
     Route: 037

REACTIONS (1)
  - Meningitis chemical [Recovered/Resolved]
